FAERS Safety Report 17360672 (Version 1)
Quarter: 2020Q1

REPORT INFORMATION
  Report Type: Spontaneous
  Country: DE (occurrence: DE)
  Receive Date: 20200203
  Receipt Date: 20200203
  Transmission Date: 20200409
  Serious: Yes (Other)
  Sender: FDA-Public Use
  Company Number: NVSC2020DE020637

PATIENT
  Age: 1 Day
  Sex: Male
  Weight: 3.69 kg

DRUGS (7)
  1. SERTRALINE [Suspect]
     Active Substance: SERTRALINE HYDROCHLORIDE
     Indication: FOETAL EXPOSURE DURING PREGNANCY
     Dosage: 200 MG/DL, UNKNOWN (200-0-0) (MOTHER DOSE)
     Route: 064
     Dates: start: 20180525
  2. SERTRALINE [Suspect]
     Active Substance: SERTRALINE HYDROCHLORIDE
     Dosage: 200 MG/DL, UNKNOWN (200-0-0) (MOTHER DOSE)
     Route: 064
     Dates: start: 20190301
  3. VAXIGRIP [Concomitant]
     Active Substance: INFLUENZA VIRUS VACCINE
     Indication: IMMUNISATION
     Dosage: UNK (MOTHER DOSE)
     Route: 064
     Dates: start: 20181128, end: 20181128
  4. ENOXAPARIN [Concomitant]
     Active Substance: ENOXAPARIN
     Indication: LIPOPROTEIN (A) INCREASED
     Dosage: 40 MG/DL, UNKNOWN (MOTHER DOSE)
     Route: 064
     Dates: start: 20180527
  5. ENOXAPARIN [Concomitant]
     Active Substance: ENOXAPARIN
     Dosage: 40 MG/DL, UNKNOWN (MOTHER DOSE)
     Route: 064
     Dates: start: 20190301
  6. QUETIAPINE. [Suspect]
     Active Substance: QUETIAPINE
     Indication: FOETAL EXPOSURE DURING PREGNANCY
     Dosage: 100 MG/DL, UNKNOWN (MOTHER DOSE) (75 MG RETARDIERT UND 25 MG UNRETARDIERT) ]
     Route: 064
     Dates: start: 20180525
  7. QUETIAPINE. [Suspect]
     Active Substance: QUETIAPINE
     Dosage: 100 MG/DL, UNKNOWN (MOTHER DOSE) (75 MG RETARDIERT UND 25 MG UNRETARDIERT) ]
     Route: 064
     Dates: start: 20190301

REACTIONS (3)
  - Respiratory disorder neonatal [Recovered/Resolved]
  - Infantile apnoea [Recovered/Resolved]
  - Foetal exposure during pregnancy [Unknown]

NARRATIVE: CASE EVENT DATE: 20190301
